FAERS Safety Report 9268246 (Version 1)
Quarter: 2013Q2

REPORT INFORMATION
  Report Type: Spontaneous
  Country: US (occurrence: US)
  Receive Date: 20130502
  Receipt Date: 20130502
  Transmission Date: 20140414
  Serious: Yes (Hospitalization, Other)
  Sender: FDA-Public Use
  Company Number: US-ALEXION-A201202112

PATIENT
  Age: 32 Year
  Sex: Female

DRUGS (2)
  1. SOLIRIS 300MG [Suspect]
     Indication: HAEMOLYTIC URAEMIC SYNDROME
     Dosage: 1899 MG, UNK
     Route: 042
  2. COUMADIN [Concomitant]
     Indication: VENOUS THROMBOSIS
     Dosage: UNK

REACTIONS (4)
  - Renal failure chronic [Unknown]
  - Renal transplant [Unknown]
  - Vomiting [Unknown]
  - Catheter removal [Unknown]
